FAERS Safety Report 8188710-4 (Version None)
Quarter: 2012Q1

REPORT INFORMATION
  Report Type: 
  Country: None (occurrence: None)
  Receive Date: 20120306
  Receipt Date: 20120301
  Transmission Date: 20120608
  Serious: Yes (Hospitalization)
  Sender: FDA-Public Use
  Company Number: DE-GILEAD-2012-0050131

PATIENT
  Sex: Male

DRUGS (8)
  1. AMLODIPINE BESYLATE [Concomitant]
     Route: 048
  2. PANTOPRAZOL                        /01263202/ [Concomitant]
     Route: 048
  3. METFORMIN HCL [Suspect]
     Route: 048
  4. TAMSULOSIN HCL [Concomitant]
     Route: 048
  5. BISOPROLOL FUMARATE [Concomitant]
     Route: 048
  6. HYDROCHLOROTHIAZIDE [Concomitant]
     Route: 048
  7. VIREAD [Suspect]
     Indication: PRODUCT USED FOR UNKNOWN INDICATION
     Dosage: UNK
     Dates: start: 20100301
  8. CYMBALTA [Concomitant]
     Route: 048

REACTIONS (3)
  - DIARRHOEA [None]
  - MELAENA [None]
  - ABDOMINAL PAIN [None]
